FAERS Safety Report 4971097-5 (Version None)
Quarter: 2006Q1

REPORT INFORMATION
  Report Type: 
  Country: None (occurrence: None)
  Receive Date: 20060228
  Receipt Date: 20051101
  Transmission Date: 20060701
  Serious: No
  Sender: FDA-Public Use
  Company Number: 05P-163-0316116-00

PATIENT
  Age: 40 Year
  Sex: Female

DRUGS (2)
  1. MIVACRON [Suspect]
     Indication: ANAESTHESIA
     Dosage: 6 MG, ONCE, INTRAVENOUS
     Route: 042
     Dates: start: 20051101, end: 20051101
  2. GLUCOPHAGE [Concomitant]

REACTIONS (1)
  - NEUROMUSCULAR BLOCK PROLONGED [None]
